FAERS Safety Report 26181801 (Version 1)
Quarter: 2025Q4

REPORT INFORMATION
  Report Type: Spontaneous
  Country: US (occurrence: US)
  Receive Date: 20251221
  Receipt Date: 20251221
  Transmission Date: 20260117
  Serious: No
  Sender: ABBVIE
  Company Number: US-ABBVIE-6596689

PATIENT
  Age: 79 Year
  Sex: Female
  Weight: 52 kg

DRUGS (2)
  1. OXYTROL [Suspect]
     Active Substance: OXYBUTYNIN
     Indication: Urinary incontinence
     Dosage: BEFORE 2015 OR YEAR 2015
     Route: 062
  2. OXYTROL [Suspect]
     Active Substance: OXYBUTYNIN
     Dosage: BEFORE 2015 OR YEAR 2015
     Route: 062

REACTIONS (2)
  - Application site pruritus [Recovered/Resolved]
  - Application site pruritus [Recovered/Resolved]

NARRATIVE: CASE EVENT DATE: 20241101
